FAERS Safety Report 19931681 (Version 1)
Quarter: 2021Q4

REPORT INFORMATION
  Report Type: Other
  Country: DE (occurrence: DE)
  Receive Date: 20211008
  Receipt Date: 20211008
  Transmission Date: 20220303
  Serious: Yes (Death, Other)
  Sender: FDA-Public Use
  Company Number: DE-ROCHE-2925011

PATIENT

DRUGS (4)
  1. ATEZOLIZUMAB [Suspect]
     Active Substance: ATEZOLIZUMAB
     Indication: Non-small cell lung cancer
     Route: 065
  2. NIVOLUMAB [Suspect]
     Active Substance: NIVOLUMAB
     Indication: Non-small cell lung cancer
     Route: 065
  3. DURVALUMAB [Suspect]
     Active Substance: DURVALUMAB
     Indication: Non-small cell lung cancer
     Route: 065
  4. PEMBROLIZUMAB [Suspect]
     Active Substance: PEMBROLIZUMAB
     Indication: Non-small cell lung cancer
     Route: 065

REACTIONS (20)
  - Pneumonitis [Fatal]
  - Endocrine disorder [Unknown]
  - Hepatitis [Unknown]
  - Lung disorder [Unknown]
  - Musculoskeletal disorder [Unknown]
  - Gastrointestinal disorder [Unknown]
  - Liver disorder [Unknown]
  - Skin disorder [Unknown]
  - Nervous system disorder [Unknown]
  - Cardiac disorder [Unknown]
  - Renal disorder [Unknown]
  - Pancreatic disorder [Unknown]
  - Blood disorder [Unknown]
  - Colitis [Unknown]
  - Hypophysitis [Unknown]
  - Thyroiditis [Unknown]
  - Myocarditis [Fatal]
  - Dermatitis [Unknown]
  - Psoriasis [Unknown]
  - Polyarthritis [Unknown]
